APPROVED DRUG PRODUCT: PAXLOVID (COPACKAGED)
Active Ingredient: NIRMATRELVIR; RITONAVIR
Strength: 150MG;100MG
Dosage Form/Route: TABLET;ORAL
Application: N217188 | Product #001
Applicant: PFIZER INC
Approved: May 25, 2023 | RLD: Yes | RS: Yes | Type: RX

PATENTS:
Patent 11541034 | Expires: Oct 31, 2041
Patent 11351149 | Expires: Aug 5, 2041

EXCLUSIVITY:
Code: D-195 | Date: Jan 31, 2028
Code: NCE | Date: May 25, 2028